FAERS Safety Report 20933524 (Version 1)
Quarter: 2022Q2

REPORT INFORMATION
  Report Type: Spontaneous
  Country: US (occurrence: None)
  Receive Date: 20220607
  Receipt Date: 20220607
  Transmission Date: 20220721
  Serious: No
  Sender: FDA-Public Use
  Company Number: None

PATIENT
  Sex: Female

DRUGS (1)
  1. REMICADE [Suspect]
     Active Substance: INFLIXIMAB
     Indication: Ankylosing spondylitis
     Dosage: OTHER QUANTITY : 1300;?FREQUENCY : MONTHLY;?
     Route: 042
     Dates: start: 20190505

REACTIONS (1)
  - Drug ineffective [None]
